FAERS Safety Report 6234689-1 (Version None)
Quarter: 2009Q2

REPORT INFORMATION
  Report Type: 
  Country: None (occurrence: None)
  Receive Date: 20090615
  Receipt Date: 20090318
  Transmission Date: 20091009
  Serious: No
  Sender: FDA-Public Use
  Company Number: DSA_33403_2009

PATIENT
  Sex: Female

DRUGS (10)
  1. XENAZINE [Suspect]
     Indication: TARDIVE DYSKINESIA
     Dosage: (12.5 MG TID), (12.5 MG QD)
     Dates: start: 20090201, end: 20090201
  2. XENAZINE [Suspect]
     Indication: TARDIVE DYSKINESIA
     Dosage: (12.5 MG TID), (12.5 MG QD)
     Dates: start: 20090201, end: 20090301
  3. KLONOPIN [Concomitant]
  4. VITAMIN D [Concomitant]
  5. C-VITAMIN [Concomitant]
  6. SINGULAIR [Concomitant]
  7. LIPITOR [Concomitant]
  8. SYNTHROID [Concomitant]
  9. CELEXA [Concomitant]
  10. PRILOSEC /00651201/ [Concomitant]

REACTIONS (3)
  - AKATHISIA [None]
  - ANXIETY [None]
  - RESTLESSNESS [None]
